FAERS Safety Report 22028367 (Version 2)
Quarter: 2024Q1

REPORT INFORMATION
  Report Type: Spontaneous
  Country: US (occurrence: None)
  Receive Date: 20230223
  Receipt Date: 20240206
  Transmission Date: 20240410
  Serious: No
  Sender: FDA-Public Use
  Company Number: US-ROCHE-3110023

PATIENT
  Age: 16 Year
  Sex: Male

DRUGS (10)
  1. NUTROPIN AQ [Suspect]
     Active Substance: SOMATROPIN
     Indication: Short stature
     Dosage: 6 DAYS WEEKLY, 2.6 MG 3X WK/ 2.8MG 3X WK
     Route: 058
     Dates: start: 2011
  2. NUTROPIN AQ [Suspect]
     Active Substance: SOMATROPIN
  3. NUTROPIN AQ [Suspect]
     Active Substance: SOMATROPIN
     Indication: Failure to thrive
     Route: 058
     Dates: start: 2011
  4. NUTROPIN AQ [Suspect]
     Active Substance: SOMATROPIN
  5. SYNTHROID [Concomitant]
     Active Substance: LEVOTHYROXINE SODIUM
     Indication: Hypothyroidism
     Dosage: DOSE : OPPOSITE DAYS 37.5
  6. SYNTHROID [Concomitant]
     Active Substance: LEVOTHYROXINE SODIUM
     Dosage: DOSE: OPPOSITE DAY IS 25
  7. VITAMINS [Concomitant]
     Active Substance: VITAMINS
     Dosage: 2 GUMMIES ONCE A DAY IN MORNING
  8. CYPROHEPTADINE [Concomitant]
     Active Substance: CYPROHEPTADINE
     Indication: Weight increased
  9. CYPROHEPTADINE [Concomitant]
     Active Substance: CYPROHEPTADINE
     Dates: end: 2022
  10. METHYLPHENIDATE [Concomitant]
     Active Substance: METHYLPHENIDATE
     Indication: Attention deficit hyperactivity disorder

REACTIONS (6)
  - Off label use [Unknown]
  - Device malfunction [Unknown]
  - Hernia [Recovered/Resolved]
  - Incorrect dose administered by device [Unknown]
  - Product dose omission issue [Unknown]
  - Drug delivery system issue [Unknown]

NARRATIVE: CASE EVENT DATE: 20220807
